FAERS Safety Report 5730325-9 (Version None)
Quarter: 2008Q2

REPORT INFORMATION
  Report Type: 
  Country: None (occurrence: None)
  Receive Date: 20080430
  Receipt Date: 20080118
  Transmission Date: 20081010
  Serious: No
  Sender: FDA-Public Use
  Company Number: 2008PV033982

PATIENT
  Age: 58 Year
  Sex: Female
  Weight: 83.0083 kg

DRUGS (9)
  1. SYMLIN [Suspect]
     Dosage: SC
  2. SYMLIN [Suspect]
     Dosage: 90 MCG;QD;SC,84 MCG;TID;SC,72 MCG;TID;SC,30 MCG;TID;SC,18 MCG;TID;SC,90 MCG;TID;SC
     Route: 058
     Dates: start: 20070101, end: 20070101
  3. SYMLIN [Suspect]
     Dosage: 90 MCG;QD;SC,84 MCG;TID;SC,72 MCG;TID;SC,30 MCG;TID;SC,18 MCG;TID;SC,90 MCG;TID;SC
     Route: 058
     Dates: start: 20070101, end: 20070101
  4. SYMLIN [Suspect]
     Dosage: 90 MCG;QD;SC,84 MCG;TID;SC,72 MCG;TID;SC,30 MCG;TID;SC,18 MCG;TID;SC,90 MCG;TID;SC
     Route: 058
     Dates: start: 20070101, end: 20070101
  5. SYMLIN [Suspect]
     Dosage: 90 MCG;QD;SC,84 MCG;TID;SC,72 MCG;TID;SC,30 MCG;TID;SC,18 MCG;TID;SC,90 MCG;TID;SC
     Route: 058
     Dates: start: 20080101, end: 20080101
  6. SYMLIN [Suspect]
     Dosage: 90 MCG;QD;SC,84 MCG;TID;SC,72 MCG;TID;SC,30 MCG;TID;SC,18 MCG;TID;SC,90 MCG;TID;SC
     Route: 058
     Dates: start: 20080101, end: 20080116
  7. SYMLIN [Suspect]
     Dosage: 90 MCG;QD;SC,84 MCG;TID;SC,72 MCG;TID;SC,30 MCG;TID;SC,18 MCG;TID;SC,90 MCG;TID;SC
     Route: 058
     Dates: start: 20080117
  8. NOVOLOG [Concomitant]
  9. FORTAMET [Concomitant]

REACTIONS (4)
  - BLOOD GLUCOSE DECREASED [None]
  - DECREASED APPETITE [None]
  - FEELING ABNORMAL [None]
  - NAUSEA [None]
